FAERS Safety Report 6412664-1 (Version None)
Quarter: 2009Q4

REPORT INFORMATION
  Report Type: 
  Country: None (occurrence: None)
  Receive Date: 20091023
  Receipt Date: 20091016
  Transmission Date: 20100525
  Serious: Yes (Hospitalization)
  Sender: FDA-Public Use
  Company Number: PHHO2009JP12262

PATIENT
  Sex: Female
  Weight: 60 kg

DRUGS (12)
  1. NEORAL [Suspect]
     Indication: RENAL TRANSPLANT
     Dosage: 400 MG, QD
     Route: 048
     Dates: start: 20090805
  2. SIMULECT [Suspect]
     Indication: RENAL TRANSPLANT
     Dosage: 20 MG, ONCE/SINGLE
     Route: 042
     Dates: start: 20090803, end: 20090803
  3. SIMULECT [Suspect]
     Dosage: 20 MG, ONCE/SINGLE
     Route: 042
     Dates: start: 20090807, end: 20090807
  4. MYCOPHENOLATE MOFETIL COMP-MYC+ [Suspect]
     Indication: RENAL TRANSPLANT
     Dosage: 2 G, QD
     Dates: start: 20090804, end: 20090929
  5. MYCOPHENOLATE MOFETIL COMP-MYC+ [Suspect]
     Dosage: 1.5 G, QD
     Dates: start: 20090930, end: 20090930
  6. MYCOPHENOLATE MOFETIL COMP-MYC+ [Suspect]
     Dosage: 1 G, QD
     Dates: start: 20091001
  7. MEDROL [Suspect]
     Indication: RENAL TRANSPLANT
     Dosage: 40 MG, QD
     Route: 048
     Dates: start: 20090804
  8. ALTAT [Concomitant]
     Indication: PROPHYLAXIS AGAINST GASTROINTESTINAL ULCER
  9. PERSANTINE [Concomitant]
     Indication: THROMBOSIS PROPHYLAXIS
  10. AMLODIPINE [Concomitant]
     Indication: HYPERTENSION
  11. MAALOX [Concomitant]
     Indication: INSOMNIA
  12. ISODINE [Concomitant]
     Indication: INFECTION PROPHYLAXIS

REACTIONS (2)
  - CYTOMEGALOVIRUS TEST POSITIVE [None]
  - MALAISE [None]
